FAERS Safety Report 5068450-0 (Version None)
Quarter: 2006Q3

REPORT INFORMATION
  Report Type: 
  Country: None (occurrence: None)
  Receive Date: 20060802
  Receipt Date: 20051005
  Transmission Date: 20061208
  Serious: No
  Sender: FDA-Public Use
  Company Number: US-BRISTOL-MYERS SQUIBB COMPANY-13133830

PATIENT
  Age: 85 Year
  Sex: Male

DRUGS (4)
  1. COUMADIN [Suspect]
     Indication: ATRIAL FIBRILLATION
     Dosage: CURRENT REGIMEN: 5 MG TAB, 5 DAYS PER WEEK AND 7 MG TAB, 2 DAYS PER WEEK
     Dates: start: 19930101
  2. SYNTHROID [Concomitant]
  3. NIACIN [Concomitant]
  4. FLOMAX [Concomitant]

REACTIONS (1)
  - INTERNATIONAL NORMALISED RATIO FLUCTUATION [None]
